FAERS Safety Report 8544952 (Version 2)
Quarter: 2012Q4

REPORT INFORMATION
  Report Type: 
  Country: TW (occurrence: TW)
  Receive Date: 20120503
  Receipt Date: 20121012
  Transmission Date: 20130627
  Serious: Yes (Hospitalization, Other)
  Sender: FDA-Public Use
  Company Number: TW-PFIZER INC-2012103594

PATIENT
  Age: 66 Year
  Sex: Female

DRUGS (2)
  1. CISPLATIN [Suspect]
     Indication: BREAST CANCER
     Dosage: 50 mg/m2, cyclic (day 2 of chemotherapy cycle)
     Route: 065
  2. DOCETAXEL [Concomitant]
     Indication: BREAST CANCER
     Dosage: 70 mg/m2, cyclic (day 1 of chemotherapy cycle)
     Route: 065

REACTIONS (3)
  - Convulsion [Recovering/Resolving]
  - Coma [Recovering/Resolving]
  - Hyponatraemia [Recovered/Resolved]
